FAERS Safety Report 8984755 (Version 2)
Quarter: 2013Q4

REPORT INFORMATION
  Report Type: Spontaneous
  Country: US (occurrence: None)
  Receive Date: 20121214
  Receipt Date: 20131008
  Transmission Date: 20140711
  Serious: Yes (Other)
  Sender: FDA-Public Use
  Company Number: 2012P1066518

PATIENT
  Age: 39 Year
  Sex: Male

DRUGS (3)
  1. INFUMORPH [Suspect]
     Indication: INTERVERTEBRAL DISC DEGENERATION
  2. INFUMORPH [Suspect]
     Indication: PAIN
  3. BACLOFEN [Suspect]
     Indication: INTERVERTEBRAL DISC DEGENERATION

REACTIONS (5)
  - Hypoaesthesia [None]
  - Muscle spasticity [None]
  - Underdose [None]
  - Inadequate analgesia [None]
  - Granuloma [None]
